FAERS Safety Report 15189062 (Version 1)
Quarter: 2018Q3

REPORT INFORMATION
  Report Type: Spontaneous
  Country: CA (occurrence: CA)
  Receive Date: 20180724
  Receipt Date: 20180724
  Transmission Date: 20181010
  Serious: Yes (Life-Threatening, Hospitalization)
  Sender: FDA-Public Use
  Company Number: CA-BAYER-200510060BCA

PATIENT
  Age: 73 Year
  Sex: Male

DRUGS (10)
  1. AMIODARONE [Concomitant]
     Active Substance: AMIODARONE
     Indication: UNEVALUABLE EVENT
     Dosage: 200 MG (DAILY DOSE), QD, ORAL
     Route: 048
  2. TIOTROPIUM BROMIDE [Concomitant]
     Active Substance: TIOTROPIUM BROMIDE
     Indication: UNEVALUABLE EVENT
     Dosage: 18 ?G (DAILY DOSE), QD, UNKNOWN
     Route: 065
  3. SENOKOT [SENNA ALEXANDRINA FRUIT] [Concomitant]
     Indication: UNEVALUABLE EVENT
     Dosage: 17.6 MG (DAILY DOSE), QD, ORAL
     Route: 048
  4. LEVOTHYROXINE. [Concomitant]
     Active Substance: LEVOTHYROXINE
     Indication: UNEVALUABLE EVENT
     Dosage: 50 ?G (DAILY DOSE), QD, ORAL
     Route: 048
  5. ADVAIR HFA [Concomitant]
     Active Substance: FLUTICASONE PROPIONATE\SALMETEROL XINAFOATE
     Indication: UNEVALUABLE EVENT
     Route: 065
  6. MOXIFLOXACIN. [Suspect]
     Active Substance: MOXIFLOXACIN
     Indication: PNEUMONIA
     Route: 048
     Dates: start: 20050201
  7. DOCUSATE SODIUM. [Concomitant]
     Active Substance: DOCUSATE SODIUM
     Indication: UNEVALUABLE EVENT
     Route: 065
  8. LOSEC [Concomitant]
     Active Substance: OMEPRAZOLE
     Indication: UNEVALUABLE EVENT
     Dosage: DAILY DOSE 20 MG
     Route: 048
  9. DIDROCAL [Concomitant]
     Active Substance: CALCIUM CARBONATE\ETIDRONATE DISODIUM
     Indication: UNEVALUABLE EVENT
     Route: 048
  10. MULTIVITAMIN [Concomitant]
     Active Substance: VITAMINS
     Indication: UNEVALUABLE EVENT
     Route: 048

REACTIONS (1)
  - Hypoglycaemia [Not Recovered/Not Resolved]

NARRATIVE: CASE EVENT DATE: 20050205
